FAERS Safety Report 21509028 (Version 3)
Quarter: 2023Q1

REPORT INFORMATION
  Report Type: Spontaneous
  Country: US (occurrence: US)
  Receive Date: 20221026
  Receipt Date: 20230105
  Transmission Date: 20230418
  Serious: Yes (Other)
  Sender: FDA-Public Use
  Company Number: US-JNJFOC-20221035412

PATIENT
  Age: 81 Year
  Sex: Female
  Weight: 63.560 kg

DRUGS (2)
  1. XARELTO [Suspect]
     Active Substance: RIVAROXABAN
     Indication: Cerebrovascular accident
     Route: 048
     Dates: start: 202111, end: 20220929
  2. XARELTO [Suspect]
     Active Substance: RIVAROXABAN
     Dosage: GTIN NUMBER 00350458578300?SERIAL NUMBER 100009867275?PRESCRIPTION NUMBER 6753751
     Route: 048
     Dates: start: 20220929

REACTIONS (2)
  - Nephropathy toxic [Unknown]
  - Product packaging quantity issue [Unknown]

NARRATIVE: CASE EVENT DATE: 20221018
